FAERS Safety Report 14769182 (Version 1)
Quarter: 2018Q2

REPORT INFORMATION
  Report Type: Spontaneous
  Country: AU (occurrence: AU)
  Receive Date: 20180417
  Receipt Date: 20180417
  Transmission Date: 20180711
  Serious: Yes (Other)
  Sender: FDA-Public Use
  Company Number: PHHY2018AU064458

PATIENT
  Sex: Female

DRUGS (2)
  1. PANADOL [Suspect]
     Active Substance: ACETAMINOPHEN
     Indication: PRODUCT USED FOR UNKNOWN INDICATION
     Route: 065
  2. VOLTAREN [Suspect]
     Active Substance: DICLOFENAC SODIUM
     Indication: PRODUCT USED FOR UNKNOWN INDICATION
     Route: 065

REACTIONS (12)
  - Pulmonary oedema [Unknown]
  - Drug ineffective [Unknown]
  - Abdominal discomfort [Unknown]
  - Off label use [Unknown]
  - Peripheral swelling [Unknown]
  - Abdominal pain upper [Unknown]
  - Insomnia [Unknown]
  - Blood pressure increased [Unknown]
  - Headache [Unknown]
  - Joint swelling [Unknown]
  - Drug dispensing error [Unknown]
  - Dyspnoea [Unknown]
